FAERS Safety Report 4708605-5 (Version None)
Quarter: 2005Q3

REPORT INFORMATION
  Report Type: 
  Country: None (occurrence: None)
  Receive Date: 20050706
  Receipt Date: 20050630
  Transmission Date: 20060218
  Serious: Yes (Other)
  Sender: FDA-Public Use
  Company Number: GBWYE788130JUN05

PATIENT
  Age: 54 Year
  Sex: Female

DRUGS (4)
  1. EFFEXOR XR [Suspect]
     Dosage: 75MG
     Dates: start: 20050201
  2. PROTHIADEN [Concomitant]
  3. PROTHIADEN [Concomitant]
  4. STILNOCT (ZOLPIDEM TARTRATE) [Concomitant]

REACTIONS (2)
  - COORDINATION ABNORMAL [None]
  - FALL [None]
